FAERS Safety Report 8492353-2 (Version None)
Quarter: 2012Q2

REPORT INFORMATION
  Report Type: 
  Country: None (occurrence: None)
  Receive Date: 20120629
  Receipt Date: 20120629
  Transmission Date: 20120825
  Serious: No
  Sender: FDA-Public Use
  Company Number: None

PATIENT
  Age: 74 Year
  Sex: Female
  Weight: 60.5 kg

DRUGS (19)
  1. REVLIMID [Suspect]
     Indication: WALDENSTROM'S MACROGLOBULINAEMIA
     Dosage: 10 MG 1 CAP DAILY X21D ORAL
     Route: 048
     Dates: start: 20120406, end: 20120605
  2. BECLOMETHASONE DIPROPIONATE [Concomitant]
  3. METHYLPREDNISOLONE [Concomitant]
  4. DIPROPIONATE [Concomitant]
  5. BENZONOLATE [Concomitant]
  6. HYDROQUINONE [Concomitant]
  7. ALBUTEROL [Concomitant]
  8. FLUTICASONE PROPIONATE [Concomitant]
  9. IBUPROFEN [Concomitant]
  10. TRAZODONE HYDROCHLORIDE [Concomitant]
  11. HYDROCODONE BITARTRATE + ACETAMINOPHEN [Concomitant]
  12. ONDANSETRON [Concomitant]
  13. ALLOPURINOL [Concomitant]
  14. CETIRIZINE [Concomitant]
  15. FUROSEMIDE [Concomitant]
  16. CODEINE-GUAIFENESIN [Concomitant]
  17. CALCIUM CARBONATE [Concomitant]
  18. LENALIDOMIDE [Concomitant]
  19. CETIRIZINE-PSEUDOEPHRINE [Concomitant]

REACTIONS (4)
  - COUGH [None]
  - PLEURAL EFFUSION [None]
  - FATIGUE [None]
  - CONDITION AGGRAVATED [None]
